FAERS Safety Report 6718701-9 (Version None)
Quarter: 2010Q2

REPORT INFORMATION
  Report Type: 
  Country: None (occurrence: None)
  Receive Date: 20100507
  Receipt Date: 20100423
  Transmission Date: 20101027
  Serious: Yes (Hospitalization, Other)
  Sender: FDA-Public Use
  Company Number: A-US2010-35994

PATIENT
  Age: 72 Year
  Sex: Male

DRUGS (25)
  1. TRACLEER [Suspect]
     Indication: PULMONARY ARTERIAL HYPERTENSION
     Dosage: ORAL
     Route: 048
     Dates: end: 20100301
  2. OXYGEN (OXYGEN) [Concomitant]
  3. ADVAIR DISKUS 100/50 [Concomitant]
  4. ALBUTEROL [Concomitant]
  5. FLOVENT [Concomitant]
  6. LASIX [Concomitant]
  7. LISINOPRIL (LISINOPRIL DIHYDRATE) [Concomitant]
  8. SPIRIVA [Concomitant]
  9. VERAPAMIL HYDROCHLORIDE [Concomitant]
  10. ZOCOR [Concomitant]
  11. COUMADIN [Concomitant]
  12. ASPIRIN [Concomitant]
  13. ALENDRONATE SODIUM [Concomitant]
  14. OXYGEN (OXYGEN) [Concomitant]
  15. ADVAIR DISKUS 100/50 [Concomitant]
  16. ALBUTEROL [Concomitant]
  17. FLOVENT [Concomitant]
  18. LASIX [Concomitant]
  19. LISINOPRIL (LISINOPRIL DIHYDRATE) [Concomitant]
  20. SPIRIVA [Concomitant]
  21. VERAPAMIL HYDROCHLORIDE [Concomitant]
  22. ZOCOR [Concomitant]
  23. COUMADIN [Concomitant]
  24. ASPIRIN [Concomitant]
  25. ALENDRONATE SODIUM [Concomitant]

REACTIONS (9)
  - ANAEMIA [None]
  - DIASTOLIC DYSFUNCTION [None]
  - EPISTAXIS [None]
  - INTERNATIONAL NORMALISED RATIO DECREASED [None]
  - INTERSTITIAL LUNG DISEASE [None]
  - MALAISE [None]
  - OEDEMA PERIPHERAL [None]
  - PULMONARY ARTERIAL HYPERTENSION [None]
  - RESPIRATORY FAILURE [None]
